FAERS Safety Report 7278672-6 (Version None)
Quarter: 2011Q1

REPORT INFORMATION
  Report Type: 
  Country: None (occurrence: None)
  Receive Date: 20110207
  Receipt Date: 20110131
  Transmission Date: 20110831
  Serious: No
  Sender: FDA-Public Use
  Company Number: US-PFIZER INC-2011022655

PATIENT
  Sex: Female
  Weight: 65.3 kg

DRUGS (5)
  1. CLONAZEPAM [Suspect]
     Indication: SLEEP DISORDER
  2. GABAPENTIN [Suspect]
     Indication: NEURALGIA
     Dosage: 100 MG, 3X/DAY
     Dates: start: 20110101
  3. CLONAZEPAM [Suspect]
     Indication: ANXIETY
     Dosage: 1MG AM, 2MG PM
  4. CLONAZEPAM [Suspect]
     Indication: TREMOR
  5. MIRALAX [Suspect]
     Indication: CONSTIPATION
     Dosage: UNK

REACTIONS (6)
  - DRY MOUTH [None]
  - CHEST PAIN [None]
  - DYSPHAGIA [None]
  - GAIT DISTURBANCE [None]
  - CONSTIPATION [None]
  - PAIN IN EXTREMITY [None]
